FAERS Safety Report 19922636 (Version 2)
Quarter: 2021Q4

REPORT INFORMATION
  Report Type: Report from Study
  Country: US (occurrence: US)
  Receive Date: 20211005
  Receipt Date: 20211019
  Transmission Date: 20220303
  Serious: Yes (Other)
  Sender: FDA-Public Use
  Company Number: US-EVEREST MEDICINES II (HK) LIMITED-2021-0551231

PATIENT
  Sex: Female

DRUGS (2)
  1. SACITUZUMAB GOVITECAN [Suspect]
     Active Substance: SACITUZUMAB GOVITECAN
     Indication: Triple negative breast cancer
     Dosage: UNK
     Route: 042
     Dates: start: 202104
  2. KEYTRUDA [Suspect]
     Active Substance: PEMBROLIZUMAB
     Indication: Product used for unknown indication
     Dosage: UNK
     Route: 042

REACTIONS (2)
  - Disease progression [Not Recovered/Not Resolved]
  - Seizure [Not Recovered/Not Resolved]
